FAERS Safety Report 17697560 (Version 1)
Quarter: 2020Q2

REPORT INFORMATION
  Report Type: Report from Study
  Country: US (occurrence: US)
  Receive Date: 20200423
  Receipt Date: 20200423
  Transmission Date: 20200714
  Serious: Yes (Other)
  Sender: FDA-Public Use
  Company Number: US-ROCHE-2492629

PATIENT
  Sex: Male

DRUGS (3)
  1. TECENTRIQ [Suspect]
     Active Substance: ATEZOLIZUMAB
     Indication: MALNUTRITION
  2. TECENTRIQ [Suspect]
     Active Substance: ATEZOLIZUMAB
     Indication: INTESTINAL PERFORATION
  3. TECENTRIQ [Suspect]
     Active Substance: ATEZOLIZUMAB
     Indication: SMALL INTESTINE CARCINOMA
     Dosage: INFUSE 1200MG INTRAVENOUSLY EVERY 21 DAY(S) X12 CY
     Route: 042

REACTIONS (5)
  - Gastrointestinal carcinoma [Unknown]
  - Off label use [Unknown]
  - Haemoglobin decreased [Unknown]
  - Weight increased [Unknown]
  - Intentional product use issue [Unknown]
